FAERS Safety Report 9286118 (Version 2)
Quarter: 2013Q2

REPORT INFORMATION
  Report Type: Spontaneous
  Country: TR (occurrence: TR)
  Receive Date: 20130513
  Receipt Date: 20130523
  Transmission Date: 20140414
  Serious: Yes (Hospitalization)
  Sender: FDA-Public Use
  Company Number: TR-TEVA-403772ISR

PATIENT
  Age: 43 Year
  Sex: Male

DRUGS (3)
  1. CISPLATIN [Suspect]
     Indication: GASTRIC CANCER
     Dosage: 40 MILLIGRAM DAILY; 40MG/DAY FOR 3 DAYS
     Route: 065
  2. FLUOROURACIL [Suspect]
     Indication: GASTRIC CANCER
     Dosage: 750 MILLIGRAM DAILY; 750MG/DAY FOR 3 DAYS
     Route: 065
  3. TAXOTARE [Suspect]
     Indication: GASTRIC CANCER
     Dosage: 120 GRAM DAILY; 120G/DAY FOR THE INITIAL DAY
     Route: 065

REACTIONS (1)
  - Peripheral artery thrombosis [Recovering/Resolving]
